FAERS Safety Report 9460292 (Version 1)
Quarter: 2013Q3

REPORT INFORMATION
  Report Type: Spontaneous
  Country: US (occurrence: US)
  Receive Date: 20130815
  Receipt Date: 20130815
  Transmission Date: 20140515
  Serious: Yes (Hospitalization, Other)
  Sender: FDA-Public Use
  Company Number: US-BAXTER-2013BAX019874

PATIENT
  Age: 59 Year
  Sex: Male
  Weight: 102 kg

DRUGS (6)
  1. ADVATE [Suspect]
     Indication: FACTOR VIII DEFICIENCY
     Route: 040
     Dates: start: 20130326, end: 20130326
  2. ADVATE [Suspect]
     Indication: CATHETERISATION CARDIAC
     Route: 042
     Dates: start: 20130326, end: 20130326
  3. ADVATE [Suspect]
     Indication: HAEMOPHILIA
     Route: 042
     Dates: start: 20130327, end: 20130327
  4. ADVATE [Suspect]
     Route: 040
     Dates: start: 20130329, end: 20130329
  5. ADVATE [Suspect]
     Dosage: 3 UNITS/KG/HOUR
     Route: 041
     Dates: start: 20130329, end: 20130331
  6. ADVATE [Suspect]
     Route: 040
     Dates: start: 20130331, end: 20130403

REACTIONS (1)
  - Factor VIII inhibition [Unknown]
